FAERS Safety Report 5344907-X (Version None)
Quarter: 2007Q3

REPORT INFORMATION
  Report Type: 
  Country: None (occurrence: None)
  Receive Date: 20070417
  Receipt Date: 20060313
  Transmission Date: 20080115
  Serious: Yes (Hospitalization)
  Sender: FDA-Public Use
  Company Number: 2006UW04083

PATIENT
  Age: 82 Year
  Sex: Male

DRUGS (19)
  1. ATENOLOL [Suspect]
     Dosage: 50 MG DAILY PO
     Route: 048
     Dates: start: 20010101, end: 20040601
  2. ATENOLOL [Suspect]
     Dosage: 25 MG DAILY PO
     Route: 048
     Dates: start: 20040601, end: 20040601
  3. DONEPEZIL HCL [Suspect]
     Indication: COGNITIVE DISORDER
     Dosage: 1 DF DAILY PO
     Route: 048
     Dates: start: 20040428, end: 20040615
  4. ISOSORBIDE DINITRATE [Suspect]
     Indication: ANGINA PECTORIS
     Dosage: 30 MG DAILY PO
     Route: 048
     Dates: start: 20010101
  5. COUMADIN [Suspect]
     Dosage: 4 MG/4 MG/3 MG, 1 IN 1 DAY
     Dates: start: 20020401, end: 20040429
  6. NAPROXEN [Suspect]
     Dosage: 500 MG DAILY PO
     Route: 048
     Dates: start: 20040513, end: 20040616
  7. DARVOCET [Suspect]
     Dosage: 100 MG DAILY PO
     Route: 048
     Dates: start: 20040525, end: 20040616
  8. LANSOPRAZOLE [Concomitant]
  9. SYNTHROID [Concomitant]
  10. VALSARTAN [Concomitant]
  11. FEXOFENADINE [Concomitant]
  12. SIMVASTATIN [Concomitant]
  13. TAMSULOSIN HCL [Concomitant]
  14. ASPIRIN [Concomitant]
  15. CETIRIZINE HCL [Concomitant]
  16. FINASTERIDE [Concomitant]
  17. HYTRIN [Concomitant]
  18. ROBAXIN [Concomitant]
  19. PLACEBO [Suspect]

REACTIONS (1)
  - SYNCOPE [None]
